FAERS Safety Report 23425913 (Version 1)
Quarter: 2024Q1

REPORT INFORMATION
  Report Type: Spontaneous
  Country: AU (occurrence: AU)
  Receive Date: 20240122
  Receipt Date: 20240122
  Transmission Date: 20240409
  Serious: Yes (Hospitalization, Other)
  Sender: FDA-Public Use
  Company Number: AU-BoehringerIngelheim-2024-BI-002768

PATIENT
  Age: 62 Year
  Sex: Female

DRUGS (6)
  1. EMPAGLIFLOZIN [Suspect]
     Active Substance: EMPAGLIFLOZIN
     Indication: Left ventricular failure
     Dosage: FORM STRENGTH: 10 MILLIGRAM
  2. PERINDOPRIL [Concomitant]
     Active Substance: PERINDOPRIL
     Indication: Left ventricular failure
  3. SACUBITRIL\VALSARTAN [Concomitant]
     Active Substance: SACUBITRIL\VALSARTAN
     Indication: Left ventricular failure
     Dosage: DOSE CONTAINING SACUBITRIL 49 MG AND VALSARTAN 51 MG),
  4. ROSUVASTATIN [Concomitant]
     Active Substance: ROSUVASTATIN
     Indication: Left ventricular failure
  5. NEBIVOLOL [Concomitant]
     Active Substance: NEBIVOLOL
     Indication: Left ventricular failure
  6. NEBIVOLOL [Concomitant]
     Active Substance: NEBIVOLOL
     Dosage: INCREASED TO 2.5 MG AT 2 WEEKS

REACTIONS (4)
  - Ketoacidosis [Recovered/Resolved]
  - Acute kidney injury [Unknown]
  - Pulmonary oedema [Unknown]
  - Haemodynamic instability [Unknown]
